FAERS Safety Report 26110356 (Version 1)
Quarter: 2025Q4

REPORT INFORMATION
  Report Type: Report from Study
  Country: MX (occurrence: MX)
  Receive Date: 20251202
  Receipt Date: 20251202
  Transmission Date: 20260118
  Serious: Yes (Death, Other)
  Sender: BIOVITRUM
  Company Number: MX-AstraZeneca-CH-01004439A

PATIENT
  Sex: Male
  Weight: 2.55 kg

DRUGS (3)
  1. PALIVIZUMAB [Suspect]
     Active Substance: PALIVIZUMAB
     Indication: Product used for unknown indication
     Dosage: 32 MILLIGRAM, QMONTH
     Route: 030
     Dates: start: 20250828
  2. PALIVIZUMAB [Suspect]
     Active Substance: PALIVIZUMAB
     Dosage: 48 MILLIGRAM, QMONTH
     Route: 065
     Dates: start: 20250923, end: 20250923
  3. PALIVIZUMAB [Suspect]
     Active Substance: PALIVIZUMAB
     Dosage: 38 MILLIGRAM, QMONTH
     Route: 065
     Dates: start: 20251022, end: 20251022

REACTIONS (1)
  - Pulmonary hypertension [Fatal]
